FAERS Safety Report 5336922-7 (Version None)
Quarter: 2007Q2

REPORT INFORMATION
  Report Type: 
  Country: None (occurrence: None)
  Receive Date: 20070529
  Receipt Date: 20070515
  Transmission Date: 20071010
  Serious: Yes (Other)
  Sender: FDA-Public Use
  Company Number: US-JNJFOC-20070505601

PATIENT

DRUGS (1)
  1. IBUPROFEN [Suspect]
     Indication: ARTHRALGIA

REACTIONS (1)
  - PERITONITIS [None]
